FAERS Safety Report 8177778-7 (Version None)
Quarter: 2012Q1

REPORT INFORMATION
  Report Type: 
  Country: None (occurrence: None)
  Receive Date: 20120301
  Receipt Date: 20120222
  Transmission Date: 20120608
  Serious: Yes (Hospitalization, Other)
  Sender: FDA-Public Use
  Company Number: US-MILLENNIUM PHARMACEUTICALS, INC.-2012-01257

PATIENT
  Age: 64 Year
  Sex: Male

DRUGS (3)
  1. EVEROLIMUS [Suspect]
     Dosage: 5 MG, CYCLIC
     Route: 048
     Dates: start: 20110728, end: 20120216
  2. VELCADE [Suspect]
     Dosage: 1 MG/M2, CYCLIC
     Route: 042
     Dates: start: 20110728, end: 20111216
  3. RITUXIMAB [Suspect]
     Dosage: 375 MG/M2, CYCLIC
     Route: 042
     Dates: start: 20110728, end: 20111118

REACTIONS (1)
  - PNEUMONIA FUNGAL [None]
